FAERS Safety Report 24631192 (Version 1)
Quarter: 2024Q4

REPORT INFORMATION
  Report Type: Spontaneous
  Country: US (occurrence: None)
  Receive Date: 20241117
  Receipt Date: 20241117
  Transmission Date: 20250115
  Serious: No
  Sender: Public
  Company Number: None

PATIENT
  Age: 62 Year
  Sex: Female
  Weight: 78.75 kg

DRUGS (1)
  1. PANZYGA [Suspect]
     Active Substance: HUMAN IMMUNOGLOBULIN G
     Indication: Chronic inflammatory demyelinating polyradiculoneuropathy
     Dosage: 45 G GRAM(S) 2D Q8W INTRAVENOUS DRIP ?
     Route: 041

REACTIONS (2)
  - Infusion related reaction [None]
  - Headache [None]

NARRATIVE: CASE EVENT DATE: 20241106
